FAERS Safety Report 5886658-9 (Version None)
Quarter: 2008Q3

REPORT INFORMATION
  Report Type: 
  Country: None (occurrence: None)
  Receive Date: 20080917
  Receipt Date: 20080909
  Transmission Date: 20090109
  Serious: Yes (Other)
  Sender: FDA-Public Use
  Company Number: PHHY2008IE21281

PATIENT
  Sex: Female

DRUGS (2)
  1. CLOZARIL [Suspect]
     Indication: SCHIZOPHRENIA
     Dosage: UNK
     Dates: start: 20070621
  2. FAMVIR [Concomitant]
     Dosage: UNK
     Dates: end: 20080826

REACTIONS (2)
  - HERPES ZOSTER [None]
  - MENTAL IMPAIRMENT [None]
